FAERS Safety Report 25513026 (Version 1)
Quarter: 2025Q3

REPORT INFORMATION
  Report Type: Spontaneous
  Country: GB (occurrence: GB)
  Receive Date: 20250703
  Receipt Date: 20250703
  Transmission Date: 20251020
  Serious: Yes (Life-Threatening, Hospitalization, Other)
  Sender: ELI LILLY AND COMPANY
  Company Number: None

PATIENT
  Age: 32 Year
  Sex: Female
  Weight: 117 kg

DRUGS (1)
  1. MOUNJARO [Suspect]
     Active Substance: TIRZEPATIDE
     Indication: Weight control
     Route: 065
     Dates: start: 20241210

REACTIONS (6)
  - Pancreatitis acute [Recovering/Resolving]
  - Obstructive pancreatitis [Unknown]
  - Pancreas infection [Unknown]
  - Liver disorder [Unknown]
  - Cholelithiasis [Unknown]
  - Biliary colic [Unknown]

NARRATIVE: CASE EVENT DATE: 20250527
